FAERS Safety Report 5719671-2 (Version None)
Quarter: 2008Q2

REPORT INFORMATION
  Report Type: 
  Country: None (occurrence: None)
  Receive Date: 20080426
  Receipt Date: 20080426
  Transmission Date: 20081010
  Serious: Yes (Hospitalization)
  Sender: FDA-Public Use
  Company Number: None

PATIENT
  Age: 80 Year
  Sex: Male

DRUGS (2)
  1. CLINDAMYCIN [Suspect]
     Indication: OSTEOMYELITIS
     Dosage: 150 MG QID PO
     Route: 048
     Dates: start: 20080114, end: 20080214
  2. CIPROFLOXACIN [Suspect]
     Indication: WOUND
     Dosage: 500 MG BID PO
     Route: 048
     Dates: start: 20080222, end: 20080312

REACTIONS (2)
  - DIARRHOEA [None]
  - LUNG INFECTION [None]
